FAERS Safety Report 5904464-3 (Version None)
Quarter: 2008Q3

REPORT INFORMATION
  Report Type: 
  Country: None (occurrence: None)
  Receive Date: 20080930
  Receipt Date: 20080930
  Transmission Date: 20090109
  Serious: Yes (Hospitalization)
  Sender: FDA-Public Use
  Company Number: None

PATIENT
  Sex: Female
  Weight: 65 kg

DRUGS (1)
  1. CISPLATIN [Suspect]
     Dosage: 384 MG
     Dates: start: 20080729, end: 20080902

REACTIONS (3)
  - ABDOMINAL PAIN UPPER [None]
  - ANAEMIA [None]
  - CHEST PAIN [None]
